FAERS Safety Report 7042003-7 (Version None)
Quarter: 2010Q4

REPORT INFORMATION
  Report Type: 
  Country: None (occurrence: None)
  Receive Date: 20101013
  Receipt Date: 20100302
  Transmission Date: 20110411
  Serious: No
  Sender: FDA-Public Use
  Company Number: US-ASTRAZENECA-2010SE08990

PATIENT
  Age: 42 Year
  Sex: Male

DRUGS (5)
  1. SYMBICORT [Suspect]
     Indication: ASTHMA
     Dosage: 160/4.5 MG BID
     Route: 055
     Dates: start: 20100215, end: 20100225
  2. ALBUTEROL [Concomitant]
  3. LISINOPRIL [Concomitant]
  4. MOBIC [Concomitant]
  5. PREDNISONE TAB [Concomitant]

REACTIONS (2)
  - ARTHRALGIA [None]
  - TREMOR [None]
